FAERS Safety Report 4638087-3 (Version None)
Quarter: 2005Q2

REPORT INFORMATION
  Report Type: 
  Country: None (occurrence: None)
  Receive Date: 20050415
  Receipt Date: 20050331
  Transmission Date: 20051028
  Serious: Yes (Hospitalization, Other)
  Sender: FDA-Public Use
  Company Number: 2005BI002490

PATIENT
  Age: 59 Year
  Sex: Female

DRUGS (1)
  1. AVONEX [Suspect]
     Indication: MULTIPLE SCLEROSIS
     Dosage: IM
     Route: 030
     Dates: end: 20050101

REACTIONS (7)
  - AUTOIMMUNE DISORDER [None]
  - DRUG HYPERSENSITIVITY [None]
  - ENDOCARDITIS [None]
  - PROCEDURAL COMPLICATION [None]
  - RETINOPATHY [None]
  - SEPSIS [None]
  - STAPHYLOCOCCAL INFECTION [None]
